FAERS Safety Report 16162159 (Version 2)
Quarter: 2019Q2

REPORT INFORMATION
  Report Type: Spontaneous
  Country: BR (occurrence: BR)
  Receive Date: 20190405
  Receipt Date: 20190614
  Transmission Date: 20190711
  Serious: Yes (Hospitalization, Other)
  Sender: FDA-Public Use
  Company Number: BR-SA-2019SA072967

PATIENT
  Sex: Male

DRUGS (3)
  1. CLEXANE [Suspect]
     Active Substance: ENOXAPARIN SODIUM
     Dosage: 60 MG/0.6 ML / 2 SYRINGES
     Route: 058
  2. WARFARIN SODIUM. [Suspect]
     Active Substance: WARFARIN SODIUM
     Dosage: UNK
  3. CLEXANE [Suspect]
     Active Substance: ENOXAPARIN SODIUM
     Dosage: 40 MG/0.4 ML
     Route: 058

REACTIONS (12)
  - Surgery [Unknown]
  - Discharge [Unknown]
  - Renal disorder [Unknown]
  - Paraesthesia [Unknown]
  - Aortic surgery [Unknown]
  - Intra-abdominal haematoma [Recovered/Resolved]
  - Needle issue [Unknown]
  - Hospitalisation [Unknown]
  - Skin lesion [Unknown]
  - Intervertebral disc protrusion [Unknown]
  - Cardiac operation [Unknown]
  - Injection site indentation [Unknown]
